FAERS Safety Report 17904853 (Version 1)
Quarter: 2020Q2

REPORT INFORMATION
  Report Type: Report from Study
  Country: PK (occurrence: PK)
  Receive Date: 20200616
  Receipt Date: 20200616
  Transmission Date: 20200714
  Serious: Yes (Death)
  Sender: FDA-Public Use
  Company Number: NVSC2020PK167025

PATIENT
  Age: 45 Year
  Sex: Female
  Weight: 47 kg

DRUGS (1)
  1. TASIGNA [Suspect]
     Active Substance: NILOTINIB
     Indication: CHRONIC MYELOID LEUKAEMIA
     Dosage: 200 MG, TID (2 IN MORNING, 1 IN EVENING)
     Route: 048
     Dates: start: 20190122, end: 20200310

REACTIONS (2)
  - Cardio-respiratory arrest [Fatal]
  - Inappropriate schedule of product administration [Unknown]

NARRATIVE: CASE EVENT DATE: 20190122
